FAERS Safety Report 10634050 (Version 1)
Quarter: 2014Q4

REPORT INFORMATION
  Report Type: Spontaneous
  Country: US (occurrence: None)
  Receive Date: 20141203
  Receipt Date: 20141203
  Transmission Date: 20150529
  Serious: Yes (Other)
  Sender: FDA-Public Use
  Company Number: None

PATIENT
  Age: 73 Year
  Sex: Male
  Weight: 116.12 kg

DRUGS (7)
  1. SUBOXONE [Suspect]
     Active Substance: BUPRENORPHINE HYDROCHLORIDE\NALOXONE HYDROCHLORIDE
     Indication: PAIN
     Dosage: 3 STRIPS
     Route: 060
     Dates: start: 201306
  2. GABAPENTIN. [Concomitant]
     Active Substance: GABAPENTIN
  3. HCTZ [Concomitant]
     Active Substance: HYDROCHLOROTHIAZIDE
  4. ROBAXIN [Concomitant]
     Active Substance: METHOCARBAMOL
  5. LODINE [Concomitant]
     Active Substance: ETODOLAC
  6. SIMVASTATIN. [Concomitant]
     Active Substance: SIMVASTATIN
  7. ATENOLOL. [Concomitant]
     Active Substance: ATENOLOL

REACTIONS (6)
  - Emotional disorder [None]
  - Mental disorder [None]
  - Confusional state [None]
  - Anger [None]
  - Aggression [None]
  - Fear [None]

NARRATIVE: CASE EVENT DATE: 201306
